FAERS Safety Report 6745011-6 (Version None)
Quarter: 2010Q2

REPORT INFORMATION
  Report Type: 
  Country: None (occurrence: None)
  Receive Date: 20100527
  Receipt Date: 20100518
  Transmission Date: 20101027
  Serious: Yes (Other)
  Sender: FDA-Public Use
  Company Number: FR-ROCHE-704394

PATIENT
  Sex: Female

DRUGS (2)
  1. AVASTIN [Suspect]
     Dosage: THE PATIENT RECEIVED 9 CYCLES
     Route: 042
     Dates: start: 20091020, end: 20100413
  2. TAXOTERE [Suspect]
     Dosage: THE PATIENT RECEIVED 9 CYCLES
     Route: 042
     Dates: start: 20091020, end: 20100413

REACTIONS (1)
  - PULMONARY FIBROSIS [None]
